FAERS Safety Report 7569755-1 (Version None)
Quarter: 2011Q2

REPORT INFORMATION
  Report Type: 
  Country: None (occurrence: None)
  Receive Date: 20110620
  Receipt Date: 20110606
  Transmission Date: 20111010
  Serious: Yes (Other)
  Sender: FDA-Public Use
  Company Number: JPI-P-015324

PATIENT
  Age: 39 Year
  Sex: Male
  Weight: 117.9352 kg

DRUGS (4)
  1. XYREM [Suspect]
     Indication: NARCOLEPSY
     Dosage: (2 IN 1 D),ORAL ; (50 GM FIRST DOSE/4 GM SECOND DOSE),ORAL
     Route: 048
     Dates: end: 20110605
  2. XYREM [Suspect]
     Indication: NARCOLEPSY
     Dosage: (2 IN 1 D),ORAL ; (50 GM FIRST DOSE/4 GM SECOND DOSE),ORAL
     Route: 048
     Dates: start: 20090301
  3. UNSPECIFIED MEDICATION FOR HGH BLOOD PRESSURE [Concomitant]
  4. TRAZODONE HCL [Concomitant]

REACTIONS (7)
  - ABNORMAL BEHAVIOUR [None]
  - INCORRECT DOSE ADMINISTERED [None]
  - NASOPHARYNGITIS [None]
  - LOWER LIMB FRACTURE [None]
  - FALL [None]
  - NASAL CONGESTION [None]
  - HYPERSOMNIA [None]
